FAERS Safety Report 16197102 (Version 2)
Quarter: 2019Q2

REPORT INFORMATION
  Report Type: Spontaneous
  Country: US (occurrence: US)
  Receive Date: 20190415
  Receipt Date: 20190522
  Transmission Date: 20190711
  Serious: No
  Sender: FDA-Public Use
  Company Number: US-PFIZER INC-2019156141

PATIENT
  Age: 59 Year
  Sex: Female

DRUGS (1)
  1. LATANOPROST. [Suspect]
     Active Substance: LATANOPROST
     Dosage: 2 GTT, 1X/DAY(1 DROP EYE BOTH AT BEDTIME FOR 90 DAYS)
     Route: 047

REACTIONS (1)
  - Epistaxis [Unknown]
